FAERS Safety Report 5429616-0 (Version None)
Quarter: 2007Q3

REPORT INFORMATION
  Report Type: 
  Country: None (occurrence: None)
  Receive Date: 20070824
  Receipt Date: 20070816
  Transmission Date: 20080115
  Serious: Yes (Death)
  Sender: FDA-Public Use
  Company Number: 2007-03837

PATIENT
  Age: 44 Year
  Sex: Male

DRUGS (22)
  1. HALOPERIDOL [Suspect]
     Indication: PSYCHOTIC DISORDER
     Dosage: 12 MG, DAILY, ORAL
     Route: 048
  2. DIAZEPAM [Suspect]
     Indication: ANXIETY
     Dosage: 30 MG, DAILY, ORAL
     Route: 048
  3. ALPRAZOLAM [Suspect]
     Indication: ANXIETY
     Dosage: 6 MG, DAILY, ORAL
     Route: 048
  4. ALPRAZOLAM [Suspect]
     Indication: DEPRESSION
     Dosage: 6 MG, DAILY, ORAL
     Route: 048
  5. ALPRAZOLAM [Suspect]
     Indication: HALLUCINATION
     Dosage: 6 MG, DAILY, ORAL
     Route: 048
  6. ALPRAZOLAM [Suspect]
     Indication: INSOMNIA
     Dosage: 6 MG, DAILY, ORAL
     Route: 048
  7. ALPRAZOLAM [Suspect]
     Indication: SCHIZOPHRENIA
     Dosage: 6 MG, DAILY, ORAL
     Route: 048
  8. PAROXETINE HYDROCHLORIDE [Suspect]
     Indication: DEPRESSION
     Dosage: 20 MG, DAILY, ORAL
     Route: 048
  9. FLUPHENAZINE DECANOATE [Suspect]
     Indication: HALLUCINATION
     Dosage: 25 MG, TWICE MONTHLY, INTRAMUSCULAR
     Route: 030
  10. FLUPHENAZINE DECANOATE [Suspect]
     Indication: PSYCHOTIC DISORDER
     Dosage: 25 MG, TWICE MONTHLY, INTRAMUSCULAR
     Route: 030
  11. FLUPHENAZINE DECANOATE [Suspect]
     Indication: SCHIZOPHRENIA
     Dosage: 25 MG, TWICE MONTHLY, INTRAMUSCULAR
     Route: 030
  12. FLUPHENAZINE [Suspect]
     Indication: HALLUCINATION
     Dosage: 40 MG, DAILY, ORAL
     Route: 048
  13. FLUPHENAZINE [Suspect]
     Indication: PSYCHOTIC DISORDER
     Dosage: 40 MG, DAILY, ORAL
     Route: 048
  14. FLUPHENAZINE [Suspect]
     Indication: SCHIZOPHRENIA
     Dosage: 40 MG, DAILY, ORAL
     Route: 048
  15. OLANZAPINE [Suspect]
     Indication: HALLUCINATION
     Dosage: 30 MG, DAILY, ORAL
     Route: 048
  16. OLANZAPINE [Suspect]
     Indication: PSYCHOTIC DISORDER
     Dosage: 30 MG, DAILY, ORAL
     Route: 048
  17. OLANZAPINE [Suspect]
     Indication: SCHIZOPHRENIA
     Dosage: 30 MG, DAILY, ORAL
     Route: 048
  18. BIPERIDEN HYDROCHLORIDE TAB [Suspect]
     Indication: HALLUCINATION
     Dosage: 6 MG, DAILY, ORAL
     Route: 048
  19. BIPERIDEN HYDROCHLORIDE TAB [Suspect]
     Indication: PSYCHOTIC DISORDER
     Dosage: 6 MG, DAILY, ORAL
     Route: 048
  20. BIPERIDEN HYDROCHLORIDE TAB [Suspect]
     Indication: SCHIZOPHRENIA
     Dosage: 6 MG, DAILY, ORAL
     Route: 048
  21. BROMAZEPAM (BROMAZEPAM) [Suspect]
     Indication: ANXIETY
     Dosage: 36 MG, DAILY, ORAL
     Route: 048
  22. BROMAZEPAM (BROMAZEPAM) [Suspect]
     Indication: INSOMNIA
     Dosage: 36 MG, DAILY, ORAL
     Route: 048

REACTIONS (5)
  - CARDIAC ARREST [None]
  - DRUG INTERACTION POTENTIATION [None]
  - HYPERGLYCAEMIA [None]
  - INAPPROPRIATE ANTIDIURETIC HORMONE SECRETION [None]
  - PANCREATITIS HAEMORRHAGIC [None]
